FAERS Safety Report 7705010-4 (Version None)
Quarter: 2011Q3

REPORT INFORMATION
  Report Type: 
  Country: None (occurrence: None)
  Receive Date: 20110823
  Receipt Date: 20110809
  Transmission Date: 20111222
  Serious: Yes (Death, Other)
  Sender: FDA-Public Use
  Company Number: GB-NOVOPROD-328639

PATIENT

DRUGS (3)
  1. AMITRIPTYLINE HCL [Concomitant]
     Indication: ANALGESIC THERAPY
     Dosage: UNK
     Dates: start: 20101109
  2. ACTRAPID [Suspect]
     Indication: HYPERGLYCAEMIA
     Dosage: 6 IU, UNK 1/1HOURS
     Route: 042
     Dates: start: 20101119, end: 20101122
  3. MEROPENEM [Concomitant]
     Indication: SEPSIS
     Dosage: UNK
     Route: 042
     Dates: start: 20101118

REACTIONS (5)
  - RENAL FAILURE [None]
  - DIABETIC KETOACIDOSIS [None]
  - HEPATIC FAILURE [None]
  - HYPERGLYCAEMIA [None]
  - DEVICE ISSUE [None]
